FAERS Safety Report 19125174 (Version 2)
Quarter: 2023Q1

REPORT INFORMATION
  Report Type: Report from Study
  Country: CA (occurrence: CA)
  Receive Date: 20210412
  Receipt Date: 20230307
  Transmission Date: 20230418
  Serious: Yes (Other)
  Sender: FDA-Public Use
  Company Number: CA-TAKEDA-CA202031164

PATIENT
  Age: 31 Year
  Sex: Female

DRUGS (9)
  1. HUMAN IMMUNOGLOBULIN G [Suspect]
     Active Substance: HUMAN IMMUNOGLOBULIN G
     Indication: Primary immunodeficiency syndrome
     Dosage: 6 GRAM, 1/WEEK
     Route: 065
     Dates: start: 20190104
  2. HUMAN IMMUNOGLOBULIN G [Suspect]
     Active Substance: HUMAN IMMUNOGLOBULIN G
     Dosage: 6 GRAM, 3/WEEK
     Route: 065
     Dates: start: 202001
  3. HUMAN IMMUNOGLOBULIN G [Suspect]
     Active Substance: HUMAN IMMUNOGLOBULIN G
     Dosage: 28 GRAM, 1/WEEK
     Route: 050
     Dates: start: 20190104
  4. HUMAN IMMUNOGLOBULIN G [Suspect]
     Active Substance: HUMAN IMMUNOGLOBULIN G
     Dosage: 28 GRAM, 1/WEEK
     Route: 050
     Dates: start: 20190104
  5. HUMAN IMMUNOGLOBULIN G [Suspect]
     Active Substance: HUMAN IMMUNOGLOBULIN G
     Dosage: 28 GRAM, 1/WEEK
     Route: 050
     Dates: start: 20190104
  6. HUMAN IMMUNOGLOBULIN G [Suspect]
     Active Substance: HUMAN IMMUNOGLOBULIN G
     Dosage: 21 GRAM, 1/WEEK
     Route: 065
     Dates: start: 20190104
  7. CYMBALTA [Concomitant]
     Active Substance: DULOXETINE HYDROCHLORIDE
     Indication: Product used for unknown indication
     Route: 065
  8. TYLENOL [Concomitant]
     Active Substance: ACETAMINOPHEN
     Indication: Migraine
     Route: 065
  9. BENADRYL [Concomitant]
     Active Substance: DIPHENHYDRAMINE HYDROCHLORIDE
     Indication: Migraine
     Route: 065

REACTIONS (11)
  - Lower respiratory tract infection bacterial [Not Recovered/Not Resolved]
  - Sinusitis [Not Recovered/Not Resolved]
  - COVID-19 [Recovered/Resolved with Sequelae]
  - Blood immunoglobulin G decreased [Not Recovered/Not Resolved]
  - Fibromyalgia [Unknown]
  - Blood immunoglobulin G abnormal [Unknown]
  - Migraine [Recovering/Resolving]
  - Diarrhoea [Not Recovered/Not Resolved]
  - Device infusion issue [Unknown]
  - Intentional underdose [Unknown]
  - Incorrect drug administration rate [Unknown]

NARRATIVE: CASE EVENT DATE: 20190101
